FAERS Safety Report 9380824 (Version 2)
Quarter: 2013Q4

REPORT INFORMATION
  Report Type: Spontaneous
  Country: US (occurrence: US)
  Receive Date: 20130702
  Receipt Date: 20131213
  Transmission Date: 20140711
  Serious: Yes (Other)
  Sender: FDA-Public Use
  Company Number: US-TEVA-391405USA

PATIENT
  Sex: Female
  Weight: 91.25 kg

DRUGS (10)
  1. PARAGARD 380A [Suspect]
     Indication: CONTRACEPTION
     Route: 015
     Dates: end: 2009
  2. GEODONE [Concomitant]
     Indication: POST-TRAUMATIC STRESS DISORDER
  3. ALPRAZOLAM [Concomitant]
     Indication: ANXIETY
  4. VITAMIN D [Concomitant]
     Indication: VITAMIN SUPPLEMENTATION
  5. LEVOTHYROXINE [Concomitant]
     Indication: THYROID DISORDER
  6. MORPHINE [Concomitant]
     Indication: NECK PAIN
  7. LEXAPRO [Concomitant]
     Indication: DEPRESSION
  8. CYCLOBENZAPRINE [Concomitant]
     Indication: NEURALGIA
  9. OXYCODONE [Concomitant]
     Indication: NECK PAIN
  10. IBUPROFEN [Concomitant]
     Indication: PAIN

REACTIONS (1)
  - Embedded device [Not Recovered/Not Resolved]
